FAERS Safety Report 10402316 (Version 1)
Quarter: 2014Q3

REPORT INFORMATION
  Report Type: Spontaneous
  Country: GB (occurrence: None)
  Receive Date: 20140819
  Receipt Date: 20140819
  Transmission Date: 20150326
  Serious: Yes (Other)
  Sender: FDA-Public Use
  Company Number: AUR-APL-2014-08685

PATIENT
  Age: 71 Year
  Sex: Male

DRUGS (6)
  1. SOLFENACIN (SOLIFENACIN) [Concomitant]
  2. TERBINAFINE (TERBENAFINE) [Concomitant]
  3. AMLODIPINE [Concomitant]
     Active Substance: AMLODIPINE BESYLATE
  4. RAMIPRIL. [Suspect]
     Active Substance: RAMIPRIL
     Indication: PRODUCT USED FOR UNKNOWN INDICATION
     Dates: start: 20140612, end: 20140710
  5. INDAPAMIDE (INDAPAMIDE) [Concomitant]
     Active Substance: INDAPAMIDE
  6. ATORVASTATIN (ATORVASTATIN) [Concomitant]
     Active Substance: ATORVASTATIN

REACTIONS (9)
  - Vision blurred [None]
  - Oral mucosal blistering [None]
  - Myalgia [None]
  - Diarrhoea [None]
  - Depressed mood [None]
  - Vertigo [None]
  - Nightmare [None]
  - Dizziness [None]
  - Nasal congestion [None]

NARRATIVE: CASE EVENT DATE: 20140801
